FAERS Safety Report 7415914-8 (Version None)
Quarter: 2011Q2

REPORT INFORMATION
  Report Type: 
  Country: None (occurrence: None)
  Receive Date: 20110406
  Receipt Date: 20110322
  Transmission Date: 20111010
  Serious: Yes (Hospitalization)
  Sender: FDA-Public Use
  Company Number: 2011MA002755

PATIENT
  Age: 19 Year
  Sex: Female

DRUGS (1)
  1. ALBUTEROL SULATE [Suspect]
     Indication: ASTHMA
     Dosage: INH
     Route: 055

REACTIONS (5)
  - PALPITATIONS [None]
  - ATRIAL FIBRILLATION [None]
  - DRUG ABUSE [None]
  - MITRAL VALVE INCOMPETENCE [None]
  - EATING DISORDER [None]
